FAERS Safety Report 24687719 (Version 1)
Quarter: 2024Q4

REPORT INFORMATION
  Report Type: Spontaneous
  Country: GB (occurrence: GB)
  Receive Date: 20241202
  Receipt Date: 20241202
  Transmission Date: 20250115
  Serious: Yes (Other)
  Sender: MYLAN
  Company Number: GB-MHRA-TPP46062840C9151471YC1732529964043

PATIENT
  Age: 73 Year
  Sex: Male
  Weight: 113 kg

DRUGS (13)
  1. ATORVASTATIN [Suspect]
     Active Substance: ATORVASTATIN
     Indication: Ill-defined disorder
     Dosage: 80 MILLIGRAM, UNK
     Route: 065
     Dates: start: 20240416
  2. DIAMICRON [Concomitant]
     Indication: Ill-defined disorder
     Dosage: 2 DOSAGE FORM, AM (TAKE TWO IN THE MORNING)
     Route: 065
     Dates: start: 20220927
  3. Evolve ha [Concomitant]
     Indication: Dry eye
     Dosage: UNK (USE AS DIRECTED)
     Route: 065
     Dates: start: 20220927
  4. NITROGLYCERIN [Concomitant]
     Active Substance: NITROGLYCERIN
     Indication: Ill-defined disorder
     Dosage: 1 DOSAGE FORM, UNK (ONE PUFF AS NEEDED)
     Route: 065
     Dates: start: 20220927
  5. Sukkarto sr [Concomitant]
     Indication: Ill-defined disorder
     Dosage: 2 DOSAGE FORM, BID (2 MORNING 2 EVENING)
     Route: 065
     Dates: start: 20220927
  6. LOSARTAN [Concomitant]
     Active Substance: LOSARTAN
     Indication: Ill-defined disorder
     Dosage: 1 DOSAGE FORM, QD (1 TO BE TAKEN DAILY)
     Route: 065
     Dates: start: 20231026
  7. ASPIRIN [Concomitant]
     Active Substance: ASPIRIN
     Indication: Ill-defined disorder
     Dosage: 1 DOSAGE FORM, QD (1 TO BE TAKEN DAILY)
     Route: 065
     Dates: start: 20231114
  8. FAMOTIDINE [Concomitant]
     Active Substance: FAMOTIDINE
     Indication: Ill-defined disorder
     Dosage: 1 DOSAGE FORM, QD (ONE DAILY)
     Route: 065
     Dates: start: 20240110
  9. BISOPROLOL [Concomitant]
     Active Substance: BISOPROLOL
     Indication: Ill-defined disorder
     Dosage: 1 DOSAGE FORM, QD (TAKE ONE DAILY)
     Route: 065
     Dates: start: 20240118
  10. ISOSORBIDE MONONITRATE [Concomitant]
     Active Substance: ISOSORBIDE MONONITRATE
     Indication: Ill-defined disorder
     Dosage: UNK, AM (TAKE HALF A TABLET EACH MORNING)
     Route: 065
     Dates: start: 20240405
  11. ACETAMINOPHEN [Concomitant]
     Active Substance: ACETAMINOPHEN
     Indication: Ill-defined disorder
     Dosage: 2 DOSAGE FORM, QID (TAKE 2 TABLETS 4 TIMES A DAY)
     Route: 065
     Dates: start: 20240405
  12. DOXAZOSIN [Concomitant]
     Active Substance: DOXAZOSIN\DOXAZOSIN MESYLATE
     Indication: Hypertension
     Dosage: 1 DOSAGE FORM, QD (ONE TABLET DAILY)
     Route: 065
     Dates: start: 20240429
  13. SIMVASTATIN [Concomitant]
     Active Substance: SIMVASTATIN
     Indication: Ill-defined disorder
     Dosage: 1 DOSAGE FORM, QD (1 TO BE TAKEN DAILY)
     Route: 065
     Dates: start: 20241125

REACTIONS (2)
  - Muscular weakness [Recovering/Resolving]
  - Drug intolerance [Unknown]
